FAERS Safety Report 8616877 (Version 2)
Quarter: 2012Q4

REPORT INFORMATION
  Report Type: 
  Country: AR (occurrence: AR)
  Receive Date: 20120615
  Receipt Date: 20121203
  Transmission Date: 20130627
  Serious: Yes (Other)
  Sender: FDA-Public Use
  Company Number: PHHY2012AR050368

PATIENT
  Age: 70 Year
  Sex: Female

DRUGS (2)
  1. DIOVAN D [Suspect]
     Indication: HYPERTENSION
     Dosage: 160/25mg, daily
     Dates: start: 201105
  2. DIAMICRON [Concomitant]
     Indication: HYPOGLYCAEMIA
     Dosage: 60 UKN, TID
     Route: 048

REACTIONS (2)
  - Cataract [Not Recovered/Not Resolved]
  - Visual acuity reduced [Not Recovered/Not Resolved]
